FAERS Safety Report 5163287-6 (Version None)
Quarter: 2006Q4

REPORT INFORMATION
  Report Type: 
  Country: None (occurrence: None)
  Receive Date: 20061204
  Receipt Date: 20060801
  Transmission Date: 20070319
  Serious: Yes (Other)
  Sender: FDA-Public Use
  Company Number: PHFR2006GB02399

PATIENT
  Age: 30 Year
  Sex: Female

DRUGS (7)
  1. AMISULPRIDE [Concomitant]
     Dosage: 250 MG, QD
     Route: 048
  2. PIRENZEPINE [Concomitant]
     Dosage: 50 MG, BID
  3. TOLTERODINE [Concomitant]
     Dosage: 4 MG, QD
  4. CLOZARIL [Suspect]
     Indication: SCHIZOPHRENIA
     Dosage: 250MG
     Route: 048
     Dates: start: 20050124
  5. ACYCLOVIR [Suspect]
     Indication: HERPES ZOSTER
     Dosage: 200MG/DAY
     Route: 048
     Dates: start: 20060801, end: 20060805
  6. VALPROATE SODIUM [Concomitant]
     Indication: EPILEPSY
     Dosage: 500 MG, TID
     Route: 065
  7. TOPIRAMATE [Concomitant]
     Indication: EPILEPSY
     Dosage: 150 MG, BID
     Route: 065

REACTIONS (8)
  - BODY MASS INDEX INCREASED [None]
  - HALLUCINATIONS, MIXED [None]
  - HERPES ZOSTER [None]
  - LETHARGY [None]
  - MENTAL IMPAIRMENT [None]
  - MOOD ALTERED [None]
  - OVERWEIGHT [None]
  - STRESS [None]
